FAERS Safety Report 8817441 (Version 1)
Quarter: 2012Q4

REPORT INFORMATION
  Report Type: 
  Country: GB (occurrence: GB)
  Receive Date: 20121001
  Receipt Date: 20121001
  Transmission Date: 20130627
  Serious: Yes (Other)
  Sender: FDA-Public Use
  Company Number: GB-ASTELLAS-2011EU009279

PATIENT
  Age: 47 Year
  Sex: Female

DRUGS (1)
  1. VESICARE [Suspect]
     Indication: HYPERTONIC BLADDER
     Dosage: 20 mg, Unknown/D
     Route: 065

REACTIONS (2)
  - Incorrect dose administered [Unknown]
  - Anuria [Unknown]
